FAERS Safety Report 5682625-9 (Version None)
Quarter: 2008Q1

REPORT INFORMATION
  Report Type: 
  Country: None (occurrence: None)
  Receive Date: 20080327
  Receipt Date: 20080130
  Transmission Date: 20080703
  Serious: No
  Sender: FDA-Public Use
  Company Number: US-BRISTOL-MYERS SQUIBB COMPANY-14037568

PATIENT
  Age: 41 Year
  Sex: Female

DRUGS (8)
  1. ORENCIA [Suspect]
     Indication: RHEUMATOID ARTHRITIS
     Dosage: THERAPY DATES: 27/NOV/07;12/DEC/07;09/JAN/08
     Route: 042
     Dates: start: 20071127
  2. FOLIC ACID [Concomitant]
  3. METHOTREXATE [Concomitant]
     Dosage: 6 TABS ON FRIDAYS
  4. VITAMIN D [Concomitant]
  5. PREDNISONE TAB [Concomitant]
  6. ZOCOR [Concomitant]
  7. LORTAB [Concomitant]
     Dosage: 1 DOSAGEFORM = 10/500 UNIT NOT SPECIFIED
  8. AMBIEN [Concomitant]

REACTIONS (4)
  - BLOOD PRESSURE FLUCTUATION [None]
  - CHEST DISCOMFORT [None]
  - COUGH [None]
  - HEART RATE IRREGULAR [None]
